FAERS Safety Report 5472034-X (Version None)
Quarter: 2007Q3

REPORT INFORMATION
  Report Type: 
  Country: None (occurrence: None)
  Receive Date: 20070928
  Receipt Date: 20070918
  Transmission Date: 20080115
  Serious: Yes (Other)
  Sender: FDA-Public Use
  Company Number: GB-PFIZER INC-2007078159

PATIENT
  Age: 28 Year
  Sex: Male
  Weight: 86.6 kg

DRUGS (1)
  1. VARENICLINE TABLETS [Suspect]
     Indication: SMOKING CESSATION THERAPY
     Route: 048
     Dates: start: 20070605, end: 20070612

REACTIONS (6)
  - COORDINATION ABNORMAL [None]
  - FATIGUE [None]
  - HEADACHE [None]
  - MENTAL IMPAIRMENT [None]
  - SPEECH DISORDER [None]
  - STOMACH DISCOMFORT [None]
